FAERS Safety Report 4319238-7 (Version None)
Quarter: 2004Q1

REPORT INFORMATION
  Report Type: 
  Country: None (occurrence: None)
  Receive Date: 20040316
  Receipt Date: 20040308
  Transmission Date: 20041129
  Serious: Yes (Other)
  Sender: FDA-Public Use
  Company Number: 2003171011GB

PATIENT
  Age: 66 Year
  Sex: Male

DRUGS (4)
  1. GENOTROPIN [Suspect]
     Indication: HYPOTHYROIDISM
     Dosage: 0.4 MG, QD, SUBCUTANEOUS
     Route: 058
     Dates: start: 20010801, end: 20030716
  2. THYROXIN    (LEVOTHYROXINE SODIUM) [Concomitant]
  3. TESTOSTERONE [Concomitant]
  4. CELECOXIB [Concomitant]

REACTIONS (1)
  - PITUITARY TUMOUR BENIGN [None]
